FAERS Safety Report 22889003 (Version 5)
Quarter: 2023Q4

REPORT INFORMATION
  Report Type: Spontaneous
  Country: DE (occurrence: DE)
  Receive Date: 20230831
  Receipt Date: 20231107
  Transmission Date: 20240110
  Serious: Yes (Death, Life-Threatening, Hospitalization, Other)
  Sender: FDA-Public Use
  Company Number: DE-002147023-NVSC2023DE135754

PATIENT
  Age: 61 Year
  Sex: Female
  Weight: 57 kg

DRUGS (45)
  1. CYCLOPHOSPHAMIDE [Suspect]
     Active Substance: CYCLOPHOSPHAMIDE
     Indication: Chemotherapy
     Dosage: 300 MG/M2, QD OVER THREE DAYS
     Route: 065
     Dates: start: 20230504, end: 20230506
  2. FLUDARABINE [Suspect]
     Active Substance: FLUDARABINE PHOSPHATE
     Indication: Chemotherapy
     Dosage: 22.5 MG/M2, QD, OVER THREE DAYS
     Route: 065
     Dates: start: 20230504, end: 20230506
  3. ACYCLOVIR [Concomitant]
     Active Substance: ACYCLOVIR
     Indication: Prophylaxis
     Dosage: UNK
     Route: 065
     Dates: start: 20230228
  4. ARNICA MONTANA FLOWER [Concomitant]
     Active Substance: ARNICA MONTANA FLOWER
     Indication: Product used for unknown indication
     Dosage: UNK
     Route: 065
     Dates: start: 20230707
  5. ARNICA MONTANA (HOMEOPATHIC) [Concomitant]
     Active Substance: HOMEOPATHICS
     Indication: Perineal disorder
     Dosage: UNK
     Route: 065
     Dates: start: 20230707
  6. BISOPROLOL [Concomitant]
     Active Substance: BISOPROLOL\BISOPROLOL FUMARATE
     Indication: Cardiovascular event prophylaxis
     Dosage: UNK
     Route: 065
     Dates: start: 20230628
  7. CANDESARTAN [Concomitant]
     Active Substance: CANDESARTAN
     Indication: Hypertension
     Dosage: UNK
     Route: 065
     Dates: start: 2021
  8. Cellmustin [Concomitant]
     Indication: Anaphylactic shock
     Dosage: UNK
     Route: 065
     Dates: start: 20230725, end: 20230725
  9. Cellmustin [Concomitant]
     Indication: Transfusion reaction
     Dosage: UNK
     Route: 065
     Dates: start: 20230707, end: 20230707
  10. CLEMASTINE [Concomitant]
     Active Substance: CLEMASTINE
     Indication: Anaphylactic shock
     Dosage: UNK
     Route: 065
     Dates: start: 20230707, end: 20230707
  11. CLEMASTINE [Concomitant]
     Active Substance: CLEMASTINE
     Indication: Transfusion reaction
     Dosage: UNK
     Route: 065
     Dates: start: 20230725, end: 20230725
  12. SULFAMETHOXAZOLE\TRIMETHOPRIM [Concomitant]
     Active Substance: SULFAMETHOXAZOLE\TRIMETHOPRIM
     Indication: Infection prophylaxis
     Dosage: UNK
     Route: 065
     Dates: start: 20230505
  13. DENOSUMAB [Concomitant]
     Active Substance: DENOSUMAB
     Indication: Prophylaxis
     Dosage: UNK
     Route: 065
     Dates: start: 202111
  14. DEXAMETHASONE [Concomitant]
     Active Substance: DEXAMETHASONE
     Indication: Cytokine release syndrome
     Dosage: UNK
     Route: 065
     Dates: start: 20230615, end: 20230618
  15. ELTROMBOPAG [Concomitant]
     Active Substance: ELTROMBOPAG
     Indication: Product used for unknown indication
     Route: 065
  16. ELTROMBOPAG [Concomitant]
     Active Substance: ELTROMBOPAG
     Indication: Product used for unknown indication
     Route: 065
  17. ESTRADIOL [Concomitant]
     Active Substance: ESTRADIOL
     Indication: Menopausal symptoms
     Dosage: UNK
     Route: 065
     Dates: start: 20230401
  18. ESTRIOL [Concomitant]
     Active Substance: ESTRIOL
     Indication: Lip swelling
     Dosage: UNK
     Route: 065
     Dates: start: 20230630
  19. FILGRASTIM [Concomitant]
     Active Substance: FILGRASTIM
     Indication: White blood cell count decreased
     Dosage: UNK
     Route: 065
     Dates: start: 20230606, end: 20230609
  20. FILGRASTIM [Concomitant]
     Active Substance: FILGRASTIM
     Indication: Neutrophil count decreased
  21. FLUCONAZOLE [Concomitant]
     Active Substance: FLUCONAZOLE
     Indication: Infection prophylaxis
     Dosage: UNK
     Route: 065
     Dates: start: 20230504
  22. FOLIC ACID [Concomitant]
     Active Substance: FOLIC ACID
     Indication: Vitamin supplementation
     Dosage: UNK
     Route: 065
     Dates: start: 20230505
  23. FUROSEMIDE [Concomitant]
     Active Substance: FUROSEMIDE
     Indication: Prophylaxis
     Dosage: UNK
     Route: 065
     Dates: start: 20230524, end: 20230524
  24. GRANULOCYTE COLONY-STIMULATING FACTOR NOS [Concomitant]
     Active Substance: GRANULOCYTE COLONY-STIMULATING FACTOR NOS
     Indication: White blood cell count decreased
     Dosage: UNK
     Route: 065
     Dates: start: 20230613, end: 20230819
  25. GRANULOCYTE COLONY-STIMULATING FACTOR NOS [Concomitant]
     Active Substance: GRANULOCYTE COLONY-STIMULATING FACTOR NOS
     Dosage: UNK
     Route: 065
     Dates: start: 20230613
  26. ALUMINUM HYDROXIDE [Concomitant]
     Active Substance: ALUMINUM HYDROXIDE
     Indication: Product used for unknown indication
     Dosage: UNK
     Route: 065
     Dates: start: 20230707
  27. ALUMINUM HYDROXIDE [Concomitant]
     Active Substance: ALUMINUM HYDROXIDE
     Indication: Perineal injury
  28. CALCIUM CARBONATE\CHOLECALCIFEROL [Concomitant]
     Active Substance: CALCIUM CARBONATE\CHOLECALCIFEROL
     Indication: Acute kidney injury
     Dosage: UNK
     Route: 065
     Dates: start: 2012
  29. CALCIUM CARBONATE\CHOLECALCIFEROL [Concomitant]
     Active Substance: CALCIUM CARBONATE\CHOLECALCIFEROL
     Indication: Prophylaxis
  30. LEVETIRACETAM [Concomitant]
     Active Substance: LEVETIRACETAM
     Indication: Seizure prophylaxis
     Dosage: UNK
     Route: 065
     Dates: start: 20230617
  31. LEVETIRACETAM [Concomitant]
     Active Substance: LEVETIRACETAM
     Indication: Immune effector cell-associated neurotoxicity syndrome
  32. MAGNESIUM [Concomitant]
     Active Substance: MAGNESIUM
     Indication: Muscle spasms
     Dosage: UNK
     Route: 065
     Dates: start: 2013
  33. MEROPENEM [Concomitant]
     Active Substance: MEROPENEM
     Indication: Transfusion reaction
     Dosage: UNK
     Route: 065
     Dates: start: 20230707
  34. MORPHINE [Concomitant]
     Active Substance: MORPHINE
     Indication: Psychotherapy
     Route: 065
  35. MORPHINE [Concomitant]
     Active Substance: MORPHINE
     Indication: Psychotherapy
     Route: 065
  36. NOREPINEPHRINE [Concomitant]
     Active Substance: NOREPINEPHRINE
     Indication: Product used for unknown indication
     Dosage: UNK
     Route: 065
     Dates: start: 20230725, end: 20230725
  37. NOREPINEPHRINE [Concomitant]
     Active Substance: NOREPINEPHRINE
     Indication: Anaphylactic shock
  38. METAMIZOLE [Concomitant]
     Active Substance: METAMIZOLE
     Indication: Cytokine release syndrome
     Dosage: UNK
     Route: 065
     Dates: start: 20230525, end: 20230526
  39. PANTOPRAZOLE SODIUM [Concomitant]
     Active Substance: PANTOPRAZOLE SODIUM
     Indication: Prophylaxis against gastrointestinal ulcer
     Dosage: UNK
     Route: 065
     Dates: start: 20230504
  40. PIRITRAMIDE [Concomitant]
     Active Substance: PIRITRAMIDE
     Indication: Anaphylactic shock
     Dosage: UNK
     Route: 065
     Dates: start: 20230725, end: 20230725
  41. PREDNISOLONE [Concomitant]
     Active Substance: PREDNISOLONE
     Indication: Anaphylactic shock
     Dosage: UNK
     Route: 065
     Dates: start: 20230707, end: 20230707
  42. PREDNISOLONE [Concomitant]
     Active Substance: PREDNISOLONE
     Indication: Transfusion reaction
     Dosage: UNK
     Route: 065
     Dates: start: 20230725, end: 20230725
  43. PROGESTERONE [Concomitant]
     Active Substance: PROGESTERONE
     Indication: Menopausal symptoms
     Dosage: UNK
     Route: 065
     Dates: start: 20230401
  44. TOCILIZUMAB [Concomitant]
     Active Substance: TOCILIZUMAB
     Indication: Cytokine release syndrome
     Dosage: UNK
     Route: 065
     Dates: start: 20230526, end: 20230526
  45. VANCOMYCIN [Concomitant]
     Active Substance: VANCOMYCIN
     Indication: Cytokine release syndrome
     Dosage: UNK
     Route: 065
     Dates: start: 20230523, end: 20230529

REACTIONS (9)
  - Septic shock [Fatal]
  - Anaphylactic shock [Recovered/Resolved]
  - Febrile bone marrow aplasia [Not Recovered/Not Resolved]
  - Immune effector cell-associated neurotoxicity syndrome [Recovered/Resolved]
  - Mucormycosis [Not Recovered/Not Resolved]
  - Aspergillus infection [Not Recovered/Not Resolved]
  - Cytokine release syndrome [Recovered/Resolved]
  - Sepsis [Recovered/Resolved]
  - Sepsis [Recovered/Resolved]

NARRATIVE: CASE EVENT DATE: 20230612
